FAERS Safety Report 7497765-1 (Version None)
Quarter: 2011Q2

REPORT INFORMATION
  Report Type: 
  Country: None (occurrence: None)
  Receive Date: 20110524
  Receipt Date: 20110511
  Transmission Date: 20111010
  Serious: Yes (Other)
  Sender: FDA-Public Use
  Company Number: US-AMGEN-USASP2011021510

PATIENT
  Sex: Female

DRUGS (3)
  1. LAMICTAL [Concomitant]
  2. ENBREL [Suspect]
     Indication: PSORIASIS
  3. ENBREL [Suspect]
     Indication: RHEUMATOID ARTHRITIS
     Dosage: UNK, UNK
     Dates: start: 20090815

REACTIONS (8)
  - ARTHRALGIA [None]
  - INJECTION SITE REACTION [None]
  - SWELLING [None]
  - THERAPEUTIC RESPONSE DECREASED [None]
  - JOINT SWELLING [None]
  - PSORIASIS [None]
  - DEPRESSION [None]
  - DRUG SCREEN FALSE POSITIVE [None]
